FAERS Safety Report 10674572 (Version 2)
Quarter: 2015Q1

REPORT INFORMATION
  Report Type: Report from Study
  Country: BR (occurrence: BR)
  Receive Date: 20141224
  Receipt Date: 20150107
  Transmission Date: 20150720
  Serious: Yes (Other)
  Sender: FDA-Public Use
  Company Number: PHHY2014BR168182

PATIENT
  Sex: Female
  Weight: 70 kg

DRUGS (3)
  1. DIOVAN [Suspect]
     Active Substance: VALSARTAN
     Indication: HYPERTENSION
     Dosage: 1 DF (160 MG), QD BEFORE PREGNANCY
     Route: 048
  2. METHYLDOPA. [Concomitant]
     Active Substance: METHYLDOPA
     Indication: HYPERTENSION
     Dosage: 1 DF, Q8H
     Route: 048
  3. DIOVAN [Suspect]
     Active Substance: VALSARTAN
     Dosage: 1 DF (320 MG), QD AFTER PREGNANCY
     Route: 048

REACTIONS (3)
  - Maternal exposure during pregnancy [Unknown]
  - Pre-eclampsia [Recovering/Resolving]
  - Blood pressure increased [Recovering/Resolving]
